FAERS Safety Report 5943073-7 (Version None)
Quarter: 2008Q4

REPORT INFORMATION
  Report Type: 
  Country: None (occurrence: None)
  Receive Date: 20081106
  Receipt Date: 20081027
  Transmission Date: 20090506
  Serious: Yes (Hospitalization, Other)
  Sender: FDA-Public Use
  Company Number: BR-NOVOPROD-280744

PATIENT
  Age: 77 Year
  Sex: Female
  Weight: 96 kg

DRUGS (2)
  1. NOVORAPID PENFILL [Suspect]
     Indication: DIABETES MELLITUS
     Dosage: UNK, UNK
     Dates: end: 20080922
  2. INSULIN GLARGINE [Concomitant]
     Indication: DIABETES MELLITUS
     Dosage: 60 IU, QD
     Route: 058

REACTIONS (2)
  - BLOOD GLUCOSE INCREASED [None]
  - PNEUMONIA [None]
